FAERS Safety Report 7097606-0 (Version None)
Quarter: 2010Q4

REPORT INFORMATION
  Report Type: 
  Country: None (occurrence: None)
  Receive Date: 20101112
  Receipt Date: 20101109
  Transmission Date: 20110411
  Serious: Yes (Hospitalization)
  Sender: FDA-Public Use
  Company Number: US-BIOGENIDEC-2010BI013123

PATIENT
  Age: 46 Year
  Sex: Female

DRUGS (12)
  1. TYSABRI [Suspect]
     Indication: MULTIPLE SCLEROSIS
     Route: 042
     Dates: start: 20071206, end: 20081219
  2. TYSABRI [Suspect]
     Route: 042
     Dates: start: 20090130, end: 20100701
  3. TYSABRI [Suspect]
     Route: 042
     Dates: start: 20101028
  4. TOPROL-XL [Concomitant]
  5. VALIUM [Concomitant]
     Route: 048
  6. BACLOFEN [Concomitant]
     Route: 048
  7. ZOCOR [Concomitant]
  8. LIORESAL [Concomitant]
  9. TOPIRAMATE [Concomitant]
  10. ACETAMINOPHEN [Concomitant]
     Indication: PREMEDICATION
  11. REMERON [Concomitant]
     Route: 048
  12. LISINOPRIL [Concomitant]

REACTIONS (14)
  - ANAL HAEMORRHAGE [None]
  - DIARRHOEA [None]
  - DIZZINESS [None]
  - FALL [None]
  - FATIGUE [None]
  - HAEMARTHROSIS [None]
  - HAEMORRHOIDS [None]
  - HEADACHE [None]
  - HYPOAESTHESIA [None]
  - MEMORY IMPAIRMENT [None]
  - MULTIPLE SCLEROSIS RELAPSE [None]
  - OSTEOARTHRITIS [None]
  - URTICARIA [None]
  - VISION BLURRED [None]
